FAERS Safety Report 9171178 (Version 1)
Quarter: 2013Q1

REPORT INFORMATION
  Report Type: Spontaneous
  Country: US (occurrence: None)
  Receive Date: 20130318
  Receipt Date: 20130318
  Transmission Date: 20140127
  Serious: Yes (Other)
  Sender: FDA-Public Use
  Company Number: None

PATIENT
  Age: 210 None
  Sex: Male
  Weight: 95.26 kg

DRUGS (1)
  1. LEFLUNOMIDE [Suspect]
     Indication: ARTHRALGIA
     Dosage: 1 DAILY
     Route: 048
     Dates: start: 20131114

REACTIONS (3)
  - Skin ulcer [None]
  - Blister [None]
  - Unevaluable event [None]
